FAERS Safety Report 12621296 (Version 1)
Quarter: 2016Q3

REPORT INFORMATION
  Report Type: Spontaneous
  Country: US (occurrence: None)
  Receive Date: 20160803
  Receipt Date: 20160803
  Transmission Date: 20161109
  Serious: No
  Sender: FDA-Public Use
  Company Number: None

PATIENT
  Age: 35 Year
  Sex: Female
  Weight: 74.84 kg

DRUGS (3)
  1. TOPAMAX [Concomitant]
     Active Substance: TOPIRAMATE
  2. APRI [Concomitant]
     Active Substance: DESOGESTREL\ETHINYL ESTRADIOL
  3. ZECUITY [Suspect]
     Active Substance: SUMATRIPTAN SUCCINATE
     Indication: MIGRAINE
     Dosage: 1 PATCH EVERY 4 HOURS APPLIED AS MEDICATED PATCH TO SKIN
     Dates: start: 20160401, end: 20160801

REACTIONS (4)
  - Application site pain [None]
  - Application site erythema [None]
  - Application site bruise [None]
  - Application site discolouration [None]

NARRATIVE: CASE EVENT DATE: 20160801
